FAERS Safety Report 8859495 (Version 1)
Quarter: 2012Q4

REPORT INFORMATION
  Report Type: Spontaneous
  Country: DK (occurrence: None)
  Receive Date: 20121023
  Receipt Date: 20121023
  Transmission Date: 20130627
  Serious: Yes (Hospitalization, Other)
  Sender: FDA-Public Use
  Company Number: 2012MA012606

PATIENT
  Age: 26 Year
  Sex: Female

DRUGS (3)
  1. MIRTAZAPINE [Suspect]
     Indication: ANXIETY
     Route: 048
     Dates: end: 20120926
  2. DIAZEPAM [Concomitant]
  3. SERTRALINE [Concomitant]

REACTIONS (3)
  - Fall [None]
  - Seizure like phenomena [None]
  - Electrocardiogram QT prolonged [None]
